FAERS Safety Report 7340810-4 (Version None)
Quarter: 2011Q1

REPORT INFORMATION
  Report Type: 
  Country: None (occurrence: None)
  Receive Date: 20110301
  Receipt Date: 20110217
  Transmission Date: 20110831
  Serious: Yes (Life-Threatening, Hospitalization)
  Sender: FDA-Public Use
  Company Number: 009557

PATIENT
  Sex: Male
  Weight: 81.6475 kg

DRUGS (17)
  1. FOLIC ACID [Concomitant]
  2. CENTRUM /00554501/ [Concomitant]
  3. IRON [Concomitant]
  4. TYLENOL (CAPLET) [Concomitant]
  5. CIMZIA [Suspect]
     Indication: CROHN'S DISEASE
     Dosage: SEE IMAGE
     Route: 058
     Dates: start: 20100211, end: 20100611
  6. CIMZIA [Suspect]
     Indication: CROHN'S DISEASE
     Dosage: SEE IMAGE
     Route: 058
     Dates: start: 20100820
  7. CIMZIA [Suspect]
     Indication: CROHN'S DISEASE
     Dosage: SEE IMAGE
     Route: 058
     Dates: start: 20100709, end: 20100806
  8. CIMZIA [Suspect]
     Indication: CROHN'S DISEASE
     Dosage: SEE IMAGE
     Route: 058
     Dates: start: 20100114, end: 20100128
  9. POTASSIUM CHLORIDE [Concomitant]
  10. METHOTREXATE [Concomitant]
  11. PREDNISONE [Concomitant]
  12. ENTOCORT EC [Concomitant]
  13. BUDESONIIDE [Concomitant]
  14. BENICAR [Concomitant]
  15. SULFASALAZINE [Concomitant]
  16. CALCIUM [Concomitant]
  17. CYANOCOBALAMIN [Concomitant]

REACTIONS (20)
  - BLOOD GLUCOSE INCREASED [None]
  - HYPERNATRAEMIA [None]
  - HYPOCALCAEMIA [None]
  - PULMONARY EMBOLISM [None]
  - BRAIN NATRIURETIC PEPTIDE INCREASED [None]
  - ACUTE RESPIRATORY FAILURE [None]
  - PNEUMONIA [None]
  - PLATELET COUNT DECREASED [None]
  - OCCULT BLOOD POSITIVE [None]
  - RENAL TUBULAR NECROSIS [None]
  - DEEP VEIN THROMBOSIS [None]
  - RENAL CYST [None]
  - AORTIC VALVE INCOMPETENCE [None]
  - BLOOD CREATINE INCREASED [None]
  - RENAL FAILURE ACUTE [None]
  - RENAL ATROPHY [None]
  - PULMONARY OEDEMA [None]
  - PULMONARY INFARCTION [None]
  - BLOOD POTASSIUM DECREASED [None]
  - IMMUNOSUPPRESSION [None]
